FAERS Safety Report 23982666 (Version 2)
Quarter: 2024Q3

REPORT INFORMATION
  Report Type: Spontaneous
  Country: JP (occurrence: JP)
  Receive Date: 20240617
  Receipt Date: 20240726
  Transmission Date: 20241017
  Serious: Yes (Other)
  Sender: GILEAD
  Company Number: JP-GILEAD-2024-0677325

PATIENT
  Age: 51 Year
  Sex: Female

DRUGS (1)
  1. YESCARTA [Suspect]
     Active Substance: AXICABTAGENE CILOLEUCEL
     Indication: Diffuse large B-cell lymphoma recurrent
     Dosage: UNK
     Route: 065
     Dates: start: 20230710, end: 20230710

REACTIONS (2)
  - Diffuse large B-cell lymphoma recurrent [Recovering/Resolving]
  - Therapeutic response decreased [Unknown]

NARRATIVE: CASE EVENT DATE: 20231001
